FAERS Safety Report 14706723 (Version 1)
Quarter: 2018Q2

REPORT INFORMATION
  Report Type: Spontaneous
  Country: JP (occurrence: JP)
  Receive Date: 20180402
  Receipt Date: 20180402
  Transmission Date: 20180711
  Serious: Yes (Life-Threatening, Hospitalization)
  Sender: FDA-Public Use
  Company Number: JP-MYLANLABS-2018M1020461

PATIENT
  Age: 62 Year
  Sex: Female

DRUGS (3)
  1. FLUPHENAZINE [Suspect]
     Active Substance: FLUPHENAZINE
     Dosage: SUBSEQUENT DOSES
     Route: 030
  2. FLUPHENAZINE [Suspect]
     Active Substance: FLUPHENAZINE
     Indication: SCHIZOPHRENIA
     Dosage: FIRST DOSE AT 12.5MG
     Route: 030
  3. FLUPHENAZINE [Suspect]
     Active Substance: FLUPHENAZINE
     Dosage: SECOND DOSE AT 25MG
     Route: 030

REACTIONS (10)
  - Pneumonia [Unknown]
  - Pneumonia aspiration [Recovered/Resolved]
  - Atelectasis [Recovered/Resolved]
  - Off label use [Unknown]
  - Salivary hypersecretion [Not Recovered/Not Resolved]
  - Muscle atrophy [Recovering/Resolving]
  - Extrapyramidal disorder [Recovered/Resolved]
  - Malnutrition [Unknown]
  - Gait disturbance [Recovering/Resolving]
  - Dysphagia [Recovering/Resolving]
